FAERS Safety Report 11800740 (Version 3)
Quarter: 2016Q1

REPORT INFORMATION
  Report Type: Report from Study
  Country: BR (occurrence: BR)
  Receive Date: 20151204
  Receipt Date: 20160330
  Transmission Date: 20160525
  Serious: Yes (Hospitalization, Other)
  Sender: FDA-Public Use
  Company Number: BR-ROCHE-1659167

PATIENT
  Age: 80 Year
  Sex: Female
  Weight: 68 kg

DRUGS (3)
  1. XOLAIR [Suspect]
     Active Substance: OMALIZUMAB
     Indication: BRONCHITIS
     Dosage: 2 AMPULES, EVERY 15 DAYS
     Route: 058
  2. ALENIA (BRAZIL) [Concomitant]
     Active Substance: BUDESONIDE\FORMOTEROL FUMARATE
     Dosage: 12/400 UG
     Route: 065
  3. XOLAIR [Suspect]
     Active Substance: OMALIZUMAB
     Indication: ASTHMA
     Route: 058
     Dates: start: 20150922

REACTIONS (9)
  - Femur fracture [Recovering/Resolving]
  - Cough [Recovered/Resolved]
  - Weight decreased [Unknown]
  - Product use issue [Unknown]
  - Pain in extremity [Recovering/Resolving]
  - Fall [Unknown]
  - Bronchitis [Recovering/Resolving]
  - Neck pain [Unknown]
  - Malaise [Recovered/Resolved]

NARRATIVE: CASE EVENT DATE: 20151027
